FAERS Safety Report 10168704 (Version 1)
Quarter: 2014Q2

REPORT INFORMATION
  Report Type: Spontaneous
  Country: DE (occurrence: None)
  Receive Date: 20140509
  Receipt Date: 20140509
  Transmission Date: 20141212
  Serious: Yes (Other)
  Sender: FDA-Public Use
  Company Number: DE-20140087

PATIENT
  Age: 33 Year
  Sex: Female

DRUGS (2)
  1. GADOTERIC ACID [Suspect]
     Indication: NUCLEAR MAGNETIC RESONANCE IMAGING
     Route: 042
     Dates: start: 20140427, end: 20140427
  2. GADOTERIC ACID [Suspect]
     Indication: CRANIAL NERVE DISORDER
     Route: 042
     Dates: start: 20140427, end: 20140427

REACTIONS (5)
  - Pharyngeal oedema [None]
  - Laryngeal oedema [None]
  - Throat irritation [None]
  - Larynx irritation [None]
  - Conjunctivitis [None]
